FAERS Safety Report 5131794-8 (Version None)
Quarter: 2006Q4

REPORT INFORMATION
  Report Type: 
  Country: None (occurrence: None)
  Receive Date: 20061016
  Receipt Date: 20061002
  Transmission Date: 20070319
  Serious: Yes (Hospitalization)
  Sender: FDA-Public Use
  Company Number: 2006119976

PATIENT
  Age: 70 Year
  Sex: Male

DRUGS (2)
  1. SILDENAFIL CITRATE [Suspect]
     Dosage: (50 MG, ONE DOSE ONLY)
  2. ENALAPRIL MALEATE [Concomitant]

REACTIONS (1)
  - GLOBAL AMNESIA [None]
